FAERS Safety Report 12621448 (Version 2)
Quarter: 2016Q3

REPORT INFORMATION
  Report Type: Report from Study
  Country: JP (occurrence: JP)
  Receive Date: 20160804
  Receipt Date: 20160926
  Transmission Date: 20161109
  Serious: Yes (Hospitalization)
  Sender: FDA-Public Use
  Company Number: JP-EISAI MEDICAL RESEARCH-EC-2016-019135

PATIENT
  Age: 91 Year
  Sex: Female

DRUGS (6)
  1. NEXIUM [Concomitant]
     Active Substance: ESOMEPRAZOLE MAGNESIUM
  2. ARICEPT [Suspect]
     Active Substance: DONEPEZIL HYDROCHLORIDE
     Route: 048
     Dates: start: 20150927, end: 20151222
  3. LENDORMIN [Concomitant]
     Active Substance: BROTIZOLAM
  4. THYRADIN S [Concomitant]
     Active Substance: LEVOTHYROXINE SODIUM
  5. ARICEPT [Suspect]
     Active Substance: DONEPEZIL HYDROCHLORIDE
     Indication: DEMENTIA WITH LEWY BODIES
     Route: 048
     Dates: start: 20150912, end: 20150926
  6. TANATRIL [Concomitant]
     Active Substance: IMIDAPRIL

REACTIONS (2)
  - Rib fracture [Unknown]
  - Traumatic haemothorax [Unknown]

NARRATIVE: CASE EVENT DATE: 20151222
